FAERS Safety Report 5495831-3 (Version None)
Quarter: 2007Q4

REPORT INFORMATION
  Report Type: 
  Country: None (occurrence: None)
  Receive Date: 20071025
  Receipt Date: 20061101
  Transmission Date: 20080405
  Serious: No
  Sender: FDA-Public Use
  Company Number: A0625479A

PATIENT
  Age: 70 Year
  Sex: Female

DRUGS (3)
  1. ADVAIR DISKUS 100/50 [Suspect]
     Indication: DRUG USE FOR UNKNOWN INDICATION
     Route: 055
  2. NASONEX [Suspect]
     Indication: DRUG USE FOR UNKNOWN INDICATION
     Route: 045
  3. FORADIL [Concomitant]

REACTIONS (1)
  - FUNGAL INFECTION [None]
